FAERS Safety Report 19080756 (Version 1)
Quarter: 2021Q2

REPORT INFORMATION
  Report Type: Spontaneous
  Country: CO (occurrence: CO)
  Receive Date: 20210401
  Receipt Date: 20210401
  Transmission Date: 20210717
  Serious: Yes (Other)
  Sender: FDA-Public Use
  Company Number: CO-AMGEN-COLSP2021048973

PATIENT
  Sex: Female

DRUGS (1)
  1. ENBREL [Suspect]
     Active Substance: ETANERCEPT
     Indication: ANKYLOSING SPONDYLITIS
     Dosage: UNK
     Route: 065

REACTIONS (9)
  - Joint swelling [Unknown]
  - Gait inability [Unknown]
  - Loss of personal independence in daily activities [Unknown]
  - Suicidal ideation [Unknown]
  - Mobility decreased [Unknown]
  - Back pain [Unknown]
  - Arthralgia [Unknown]
  - Spinal pain [Unknown]
  - Depression [Unknown]

NARRATIVE: CASE EVENT DATE: 2018
